FAERS Safety Report 18733634 (Version 1)
Quarter: 2021Q1

REPORT INFORMATION
  Report Type: Report from Study
  Country: CA (occurrence: CA)
  Receive Date: 20210113
  Receipt Date: 20210113
  Transmission Date: 20210419
  Serious: Yes (Other)
  Sender: FDA-Public Use
  Company Number: CA-ACCORD-213938

PATIENT
  Sex: Female

DRUGS (5)
  1. HYDROXYCHLOROQUINE [Concomitant]
     Active Substance: HYDROXYCHLOROQUINE
     Route: 048
  2. NAPROXEN. [Concomitant]
     Active Substance: NAPROXEN
     Dosage: 2 EVERY 1 DAYS
     Route: 048
  3. FOLATE SODIUM/FOLIC ACID [Concomitant]
     Active Substance: FOLIC ACID
     Dosage: EVERY 1 DAYS
     Route: 048
  4. IBUPROFEN. [Concomitant]
     Active Substance: IBUPROFEN
     Route: 048
  5. METHOTREXATE. [Suspect]
     Active Substance: METHOTREXATE
     Indication: RHEUMATOID ARTHRITIS
     Route: 058

REACTIONS (19)
  - Discomfort [Unknown]
  - Neck pain [Unknown]
  - Arthralgia [Unknown]
  - Grip strength decreased [Unknown]
  - Tenderness [Unknown]
  - Cough [Unknown]
  - General physical health deterioration [Unknown]
  - Lower respiratory tract infection [Unknown]
  - Malaise [Unknown]
  - Musculoskeletal stiffness [Unknown]
  - Joint swelling [Unknown]
  - Product use issue [Unknown]
  - Dysstasia [Unknown]
  - Fatigue [Unknown]
  - Pain [Unknown]
  - Alopecia [Unknown]
  - Pneumonia [Unknown]
  - Back pain [Unknown]
  - Gait disturbance [Unknown]
